FAERS Safety Report 6544870-X (Version None)
Quarter: 2010Q1

REPORT INFORMATION
  Report Type: 
  Country: None (occurrence: None)
  Receive Date: 20100121
  Receipt Date: 20100112
  Transmission Date: 20100710
  Serious: Yes (Hospitalization)
  Sender: FDA-Public Use
  Company Number: US-ELI_LILLY_AND_COMPANY-US201001002293

PATIENT
  Sex: Female

DRUGS (13)
  1. CYMBALTA [Suspect]
     Indication: NEUROPATHY PERIPHERAL
     Dosage: 30 MG, DAILY (1/D)
  2. TRAMADOL [Concomitant]
     Dosage: 50 MG, UNK
  3. GABAPENTIN [Concomitant]
     Dosage: 300 MG, UNK
  4. BENICAR HCT [Concomitant]
  5. AZMACORT [Concomitant]
  6. LEVOXYL [Concomitant]
     Dosage: 75 UG, UNK
  7. SEREVENT [Concomitant]
  8. ALPRAZOLAM [Concomitant]
     Dosage: 0.5 MG, UNK
  9. PROAIR HFA [Concomitant]
  10. VITAMIN D [Concomitant]
     Dosage: 50000 IU, UNK
  11. VITAMIN B-12 [Concomitant]
  12. CENTRUM SILVER [Concomitant]
  13. CALCIUM CITRATE WITH VITAMIN D [Concomitant]

REACTIONS (6)
  - DECUBITUS ULCER [None]
  - FEELING ABNORMAL [None]
  - FOOT DEFORMITY [None]
  - OFF LABEL USE [None]
  - STRESS CARDIOMYOPATHY [None]
  - WOUND [None]
